FAERS Safety Report 20491386 (Version 1)
Quarter: 2022Q1

REPORT INFORMATION
  Report Type: Spontaneous
  Country: CN (occurrence: None)
  Receive Date: 20220218
  Receipt Date: 20220218
  Transmission Date: 20220423
  Serious: Yes (Other)
  Sender: FDA-Public Use
  Company Number: CN-ROCHE-3025785

PATIENT
  Age: 39 Year
  Sex: Male

DRUGS (5)
  1. MABTHERA [Suspect]
     Active Substance: RITUXIMAB
     Indication: Follicular lymphoma stage II
     Route: 065
     Dates: start: 20210422
  2. CYCLOPHOSPHAMIDE [Concomitant]
     Active Substance: CYCLOPHOSPHAMIDE
     Indication: Follicular lymphoma stage II
     Route: 065
     Dates: start: 20210422
  3. VINCRISTINE [Concomitant]
     Active Substance: VINCRISTINE
     Indication: Follicular lymphoma stage II
     Route: 065
     Dates: start: 20210422
  4. PREDNISONE [Concomitant]
     Active Substance: PREDNISONE
     Indication: Follicular lymphoma stage II
     Route: 065
     Dates: start: 20210422
  5. EPIRUBICIN [Concomitant]
     Active Substance: EPIRUBICIN
     Indication: Follicular lymphoma stage II
     Route: 065
     Dates: start: 20210422

REACTIONS (4)
  - Myelosuppression [Unknown]
  - Nausea [Unknown]
  - Vomiting [Unknown]
  - Asthenia [Unknown]
